FAERS Safety Report 20410841 (Version 1)
Quarter: 2022Q1

REPORT INFORMATION
  Report Type: Spontaneous
  Country: JP (occurrence: JP)
  Receive Date: 20220201
  Receipt Date: 20220201
  Transmission Date: 20220423
  Serious: Yes (Other)
  Sender: FDA-Public Use
  Company Number: US-CELGENE-JPN-20220107476

PATIENT
  Age: 69 Year
  Sex: Female

DRUGS (5)
  1. ABRAXANE [Suspect]
     Active Substance: PACLITAXEL
     Indication: Metastatic gastric cancer
     Route: 041
     Dates: start: 2020, end: 2020
  2. Cyramza(ramucirumab(genetical recombination)) [Concomitant]
     Indication: Metastatic gastric cancer
     Route: 041
     Dates: start: 2020, end: 2020
  3. OPDIVO [Concomitant]
     Active Substance: NIVOLUMAB
     Indication: Metastatic gastric cancer
     Route: 065
     Dates: start: 2018, end: 2019
  4. TS-1 [Concomitant]
     Active Substance: GIMERACIL\OTERACIL\TEGAFUR
     Indication: Metastatic gastric cancer
     Route: 065
     Dates: start: 2018, end: 2019
  5. OXALIPLATIN [Concomitant]
     Active Substance: OXALIPLATIN
     Indication: Metastatic gastric cancer
     Route: 065
     Dates: start: 2018, end: 2019

REACTIONS (3)
  - Haematemesis [Unknown]
  - Anaemia [Unknown]
  - Neuropathy peripheral [Unknown]
